FAERS Safety Report 9414518 (Version 1)
Quarter: 2013Q3

REPORT INFORMATION
  Report Type: Spontaneous
  Country: IT (occurrence: None)
  Receive Date: 20130717
  Receipt Date: 20130717
  Transmission Date: 20140515
  Serious: Yes (Other)
  Sender: FDA-Public Use
  Company Number: GER/ITL/13/0031690

PATIENT
  Age: 27 Year
  Sex: Male

DRUGS (3)
  1. LANSOPRAZOLE (LANSOPRAZOLE) [Suspect]
     Indication: ABDOMINAL PAIN UPPER
     Route: 048
     Dates: start: 20130601, end: 20130606
  2. NORMIX (RIFAXIMIN) [Concomitant]
  3. GASTROGEL (GASTROGEL/00066001/) [Concomitant]

REACTIONS (3)
  - Hypokalaemia [None]
  - Diarrhoea [None]
  - Arrhythmia [None]
